FAERS Safety Report 8515648-2 (Version None)
Quarter: 2012Q3

REPORT INFORMATION
  Report Type: 
  Country: None (occurrence: None)
  Receive Date: 20120717
  Receipt Date: 20120711
  Transmission Date: 20120928
  Serious: Yes (Hospitalization, Other)
  Sender: FDA-Public Use
  Company Number: PHHY2012US059576

PATIENT
  Age: 70 Year
  Sex: Male

DRUGS (1)
  1. CLINDAMYCIN [Suspect]

REACTIONS (8)
  - HAEMATURIA [None]
  - MYALGIA [None]
  - CELLULITIS [None]
  - TUBULOINTERSTITIAL NEPHRITIS [None]
  - FATIGUE [None]
  - PYREXIA [None]
  - EOSINOPHILIA [None]
  - PYURIA [None]
